FAERS Safety Report 11910425 (Version 1)
Quarter: 2016Q1

REPORT INFORMATION
  Report Type: Spontaneous
  Country: US (occurrence: None)
  Receive Date: 20160111
  Receipt Date: 20160111
  Transmission Date: 20160526
  Serious: Yes (Other)
  Sender: FDA-Public Use
  Company Number: None

PATIENT
  Age: 74 Year
  Sex: Female
  Weight: 59 kg

DRUGS (1)
  1. ARSENIC TRIOXIDE [Suspect]
     Active Substance: ARSENIC TRIOXIDE
     Indication: HEPATOCELLULAR CARCINOMA
     Dates: start: 20050620, end: 20050624

REACTIONS (3)
  - Chest pain [None]
  - Blood potassium abnormal [None]
  - Blood magnesium abnormal [None]

NARRATIVE: CASE EVENT DATE: 20050623
